FAERS Safety Report 25378124 (Version 1)
Quarter: 2025Q2

REPORT INFORMATION
  Report Type: Spontaneous
  Country: US (occurrence: US)
  Receive Date: 20250530
  Receipt Date: 20250530
  Transmission Date: 20250716
  Serious: No
  Sender: CIPLA
  Company Number: US-CIPLA LTD.-2024US13753

PATIENT

DRUGS (1)
  1. ALBUTEROL [Suspect]
     Active Substance: ALBUTEROL
     Indication: Chronic obstructive pulmonary disease
     Dosage: 180 MCG (2 PUFFS), QID (EVERY 6 HOURS)
     Route: 065
     Dates: start: 202409

REACTIONS (4)
  - Dyspnoea [Unknown]
  - Incorrect dose administered by device [Unknown]
  - Product physical issue [Unknown]
  - Device delivery system issue [Unknown]

NARRATIVE: CASE EVENT DATE: 20240101
